FAERS Safety Report 7032155-7 (Version None)
Quarter: 2010Q4

REPORT INFORMATION
  Report Type: 
  Country: None (occurrence: None)
  Receive Date: 20101007
  Receipt Date: 20101004
  Transmission Date: 20110411
  Serious: Yes (Hospitalization)
  Sender: FDA-Public Use
  Company Number: US-BRISTOL-MYERS SQUIBB COMPANY-15315955

PATIENT
  Age: 72 Year
  Sex: Male
  Weight: 72 kg

DRUGS (16)
  1. CARBOPLATIN [Suspect]
  2. GEMCITABINE [Suspect]
  3. DALTEPARIN SODIUM [Concomitant]
     Indication: DEEP VEIN THROMBOSIS
     Route: 058
     Dates: start: 20100429
  4. METOPROLOL TARTRATE [Concomitant]
     Dates: start: 20100401
  5. ASPIRIN [Concomitant]
  6. PLAVIX [Concomitant]
  7. SENOKOT [Concomitant]
  8. MIRALAX [Concomitant]
     Dates: start: 20100330
  9. LACTULOSE [Concomitant]
     Dates: start: 20100330
  10. ONDANSETRON [Concomitant]
     Dates: start: 20100330
  11. ALOXI [Concomitant]
     Dates: start: 20100330
  12. COMPAZINE [Concomitant]
     Dates: start: 20100330
  13. DEXAMETHASONE [Concomitant]
     Dates: start: 20100330
  14. NEUPOGEN [Concomitant]
     Dates: start: 20100330
  15. ARANESP [Concomitant]
     Dates: start: 20100530
  16. MEGESTROL [Concomitant]
     Dates: start: 20100624

REACTIONS (6)
  - ANAEMIA [None]
  - HYPOTENSION [None]
  - NEUTROPENIA [None]
  - RENAL IMPAIRMENT [None]
  - SEPSIS [None]
  - THROMBOCYTOPENIA [None]
